FAERS Safety Report 20883406 (Version 1)
Quarter: 2022Q2

REPORT INFORMATION
  Report Type: Spontaneous
  Country: CA (occurrence: CA)
  Receive Date: 20220527
  Receipt Date: 20220527
  Transmission Date: 20220721
  Serious: Yes (Disabling, Other)
  Sender: FDA-Public Use
  Company Number: CA-JNJFOC-20220544334

PATIENT
  Age: 33 Year
  Sex: Male

DRUGS (14)
  1. ULTRAM [Suspect]
     Active Substance: TRAMADOL HYDROCHLORIDE
     Indication: Pain
     Route: 065
  2. DURAGESIC [Suspect]
     Active Substance: FENTANYL
     Indication: Pain
     Route: 062
  3. DURAGESIC [Suspect]
     Active Substance: FENTANYL
     Route: 062
  4. ACETAMINOPHEN\OXYCODONE HYDROCHLORIDE [Suspect]
     Active Substance: ACETAMINOPHEN\OXYCODONE HYDROCHLORIDE
     Indication: Pain
     Route: 048
  5. ACETAMINOPHEN\OXYCODONE HYDROCHLORIDE [Suspect]
     Active Substance: ACETAMINOPHEN\OXYCODONE HYDROCHLORIDE
     Indication: Pain
     Route: 065
  6. DILAUDID [Suspect]
     Active Substance: HYDROMORPHONE HYDROCHLORIDE
     Indication: Pain
     Route: 048
  7. HYDROMORPHONE [Suspect]
     Active Substance: HYDROMORPHONE
     Indication: Pain
     Route: 048
  8. HYDROMORPHONE HYDROCHLORIDE [Suspect]
     Active Substance: HYDROMORPHONE HYDROCHLORIDE
     Indication: Pain
     Route: 065
  9. HYDROMORPHONE HYDROCHLORIDE [Suspect]
     Active Substance: HYDROMORPHONE HYDROCHLORIDE
     Indication: Pain
     Route: 048
  10. MORPHINE SULFATE [Suspect]
     Active Substance: MORPHINE SULFATE
     Indication: Pain
     Route: 048
  11. MS CONTIN [Suspect]
     Active Substance: MORPHINE SULFATE
     Indication: Pain
     Dosage: TABLET (EXTENDED- RELEASE)
     Route: 048
  12. OXYCODONE HYDROCHLORIDE [Suspect]
     Active Substance: OXYCODONE HYDROCHLORIDE
     Indication: Pain
     Route: 048
  13. OXYCONTIN [Suspect]
     Active Substance: OXYCODONE HYDROCHLORIDE
     Indication: Pain
     Route: 048
  14. OXYCONTIN [Suspect]
     Active Substance: OXYCODONE HYDROCHLORIDE
     Indication: Pain
     Dosage: TABLET (EXTENDED- RELEASE)
     Route: 048

REACTIONS (11)
  - Post-traumatic stress disorder [Unknown]
  - Endocrine disorder [Unknown]
  - Hyperaesthesia [Unknown]
  - Injury [Unknown]
  - Sleep apnoea syndrome [Unknown]
  - Drug dependence [Unknown]
  - Overdose [Unknown]
  - Drug withdrawal syndrome [Unknown]
  - Anxiety [Unknown]
  - Cognitive disorder [Unknown]
  - Depression [Unknown]
